FAERS Safety Report 8531993 (Version 2)
Quarter: 2013Q1

REPORT INFORMATION
  Report Type: Spontaneous
  Country: US (occurrence: US)
  Receive Date: 20120426
  Receipt Date: 20130321
  Transmission Date: 20140127
  Serious: Yes (Other)
  Sender: FDA-Public Use
  Company Number: US-ROCHE-1062156

PATIENT
  Age: 14 Year
  Sex: Male
  Weight: 106.69 kg

DRUGS (2)
  1. ACCUTANE [Suspect]
     Indication: ACNE
     Route: 048
     Dates: start: 200211, end: 20030415
  2. ACCUTANE [Suspect]
     Dosage: ON 03/MAR/2004, THE DOSE OF ISOTRETINOIN WAS INCREASED TO 40 MG
     Route: 048
     Dates: start: 20031107, end: 20040430

REACTIONS (11)
  - Colitis ulcerative [Unknown]
  - Inflammatory bowel disease [Unknown]
  - Depression [Not Recovered/Not Resolved]
  - Injury [Unknown]
  - Irritable bowel syndrome [Unknown]
  - Lip dry [Unknown]
  - Epistaxis [Unknown]
  - Dry skin [Unknown]
  - Chapped lips [Unknown]
  - Eczema [Unknown]
  - Headache [Unknown]
